FAERS Safety Report 12147112 (Version 2)
Quarter: 2016Q1

REPORT INFORMATION
  Report Type: Spontaneous
  Country: ES (occurrence: ES)
  Receive Date: 20160304
  Receipt Date: 20160309
  Transmission Date: 20160526
  Serious: Yes (Life-Threatening, Hospitalization)
  Sender: FDA-Public Use
  Company Number: ES-SA-2016SA043770

PATIENT
  Age: 72 Year
  Sex: Male

DRUGS (4)
  1. CLOPIDOGREL BISULFATE. [Suspect]
     Active Substance: CLOPIDOGREL BISULFATE
     Indication: PERCUTANEOUS CORONARY INTERVENTION
     Route: 065
  2. ACETYLSALICYLIC ACID [Concomitant]
     Active Substance: ASPIRIN
     Dosage: LOADING DOSE
  3. HEPARIN [Concomitant]
     Active Substance: HEPARIN SODIUM
     Route: 042
  4. EPTIFIBATIDE. [Concomitant]
     Active Substance: EPTIFIBATIDE

REACTIONS (4)
  - Platelet function test abnormal [Recovering/Resolving]
  - Drug resistance [Unknown]
  - Vascular stent thrombosis [Recovering/Resolving]
  - Acute myocardial infarction [Recovered/Resolved]
